FAERS Safety Report 8861514 (Version 1)
Quarter: 2012Q4

REPORT INFORMATION
  Report Type: 
  Country: US (occurrence: US)
  Receive Date: 20121025
  Receipt Date: 20121025
  Transmission Date: 20130627
  Serious: No
  Sender: FDA-Public Use
  Company Number: US-AMGEN-USASP2012015900

PATIENT
  Age: 66 Year
  Sex: Male

DRUGS (8)
  1. ENBREL [Suspect]
     Indication: PRODUCT USED FOR UNKNOWN INDICATION
     Dosage: 50 mg, qwk
     Route: 058
  2. FISH OIL [Concomitant]
     Dosage: UNK
  3. CARVEDILOL [Concomitant]
     Dosage: 25 mg, UNK
  4. SIMVASTATIN [Concomitant]
     Dosage: 20 mg, UNK
  5. EFFIENT [Concomitant]
     Dosage: 10 mg, UNK
  6. LISINOPRIL [Concomitant]
     Dosage: 10 mg, UNK
  7. HYDROCHLOROTH [Concomitant]
     Dosage: 12.5 mg, UNK
  8. ASPIRIN [Concomitant]
     Dosage: 81 mg, UNK

REACTIONS (1)
  - Nasopharyngitis [Unknown]
